FAERS Safety Report 18335925 (Version 1)
Quarter: 2020Q4

REPORT INFORMATION
  Report Type: Other
  Country: GB (occurrence: GB)
  Receive Date: 20201001
  Receipt Date: 20201001
  Transmission Date: 20210113
  Serious: No
  Sender: FDA-Public Use
  Company Number: GB-LUPIN PHARMACEUTICALS INC.-2020-00002

PATIENT
  Age: 70 Year
  Sex: Female
  Weight: 62 kg

DRUGS (14)
  1. AMOXICILLIN. [Concomitant]
     Active Substance: AMOXICILLIN
     Indication: ILL-DEFINED DISORDER
     Dosage: UNK, 1 TDS STANDBY COURSE
     Route: 065
     Dates: start: 20191217
  2. MINITRAN [Concomitant]
     Active Substance: NITROGLYCERIN
     Indication: ILL-DEFINED DISORDER
     Dosage: UNK, HALF A PATCH DAILY (16HOURS OUT OF 24 HOURS)
     Route: 065
     Dates: start: 20191209
  3. HYPURIN PORCINE NEUTRAL [Concomitant]
     Indication: ILL-DEFINED DISORDER
     Dosage: UNK, FOR SUBCUTANEOUS INJECTION, ACCORDING TO REQUIRED
     Route: 058
     Dates: start: 20190614
  4. SODIUM CROMOGLICATE [Concomitant]
     Active Substance: CROMOLYN SODIUM
     Indication: ILL-DEFINED DISORDER
     Dosage: UNK,ONE DROP TO BE USED IN THE AFFECTED EYE(S) FOUR
     Route: 065
     Dates: start: 20190416
  5. FUCIDIN [FUSIDATE SODIUM] [Concomitant]
     Active Substance: FUSIDATE SODIUM
     Indication: ILL-DEFINED DISORDER
     Dosage: UNK UNK, PRN, APPLY 2-3 TIMES AS NEEDED
     Route: 065
     Dates: start: 20191216
  6. PRO D3 [Concomitant]
     Active Substance: CHOLECALCIFEROL
     Indication: ILL-DEFINED DISORDER
     Dosage: 2 DOSAGE FORM, QD,TWO TO BE TAKEN EACH DAY
     Route: 065
     Dates: start: 20190416
  7. VENTOLIN [Concomitant]
     Active Substance: ALBUTEROL SULFATE
     Indication: ILL-DEFINED DISORDER
     Dosage: UNK, PRN, TWO PUFFS AS REQUIRED
     Route: 065
     Dates: start: 20190708
  8. NEBIVOLOL. [Concomitant]
     Active Substance: NEBIVOLOL
     Indication: ILL-DEFINED DISORDER
     Dosage: 1 DOSAGE FORM, QD, ONE DAILY
     Route: 065
     Dates: start: 20190416
  9. LEVOTHYROXINE. [Concomitant]
     Active Substance: LEVOTHYROXINE
     Indication: ILL-DEFINED DISORDER
     Dosage: UNK, AS DIRECTED
     Route: 065
     Dates: start: 20191217
  10. SODIUM CHLORIDE. [Concomitant]
     Active Substance: SODIUM CHLORIDE
     Indication: ILL-DEFINED DISORDER
     Dosage: UNK, AS DIRECTED
     Route: 065
     Dates: start: 20190416
  11. ACETYLSALICYLIC ACID [Concomitant]
     Active Substance: ASPIRIN
     Indication: ILL-DEFINED DISORDER
     Dosage: 1 DOSAGE FORM, QD, ONE TO BE TAKEN EACH DAY
     Route: 065
     Dates: start: 20190416
  12. CEPHALEXIN. [Suspect]
     Active Substance: CEPHALEXIN
     Indication: PRODUCT USED FOR UNKNOWN INDICATION
     Dosage: UNK
     Route: 065
     Dates: start: 20150401
  13. RANITIDINE. [Concomitant]
     Active Substance: RANITIDINE
     Indication: ILL-DEFINED DISORDER
     Dosage: UNK, 1 NIGHT
     Route: 065
     Dates: start: 20191217
  14. COLECALCIFEROL [Concomitant]
     Active Substance: CHOLECALCIFEROL
     Indication: ILL-DEFINED DISORDER
     Dosage: 1 DOSAGE FORM, QD, ONE DAILY
     Route: 065
     Dates: start: 20190416

REACTIONS (2)
  - Malaise [Unknown]
  - Oropharyngeal pain [Recovered/Resolved]

NARRATIVE: CASE EVENT DATE: 20150401
